FAERS Safety Report 8862312 (Version 3)
Quarter: 2013Q1

REPORT INFORMATION
  Report Type: Report from Study
  Country: US (occurrence: US)
  Receive Date: 20121026
  Receipt Date: 20130102
  Transmission Date: 20140127
  Serious: Yes (Hospitalization)
  Sender: FDA-Public Use
  Company Number: US-JNJFOC-20121013833

PATIENT
  Age: 14 Year
  Sex: Male
  Weight: 79.3 kg

DRUGS (8)
  1. REMICADE [Suspect]
     Indication: INFLAMMATORY BOWEL DISEASE
     Route: 042
     Dates: start: 20090101
  2. AMOXICILLIN [Concomitant]
  3. 5-ASA [Concomitant]
     Route: 048
  4. AZATHIOPRINE [Concomitant]
  5. ALLEGRA [Concomitant]
  6. OMEPRAZOLE [Concomitant]
  7. WELLBUTRIN [Concomitant]
  8. PEPTO-BISMOL [Concomitant]

REACTIONS (1)
  - Intestinal obstruction [Recovered/Resolved]
